FAERS Safety Report 6698835-8 (Version None)
Quarter: 2010Q2

REPORT INFORMATION
  Report Type: 
  Country: None (occurrence: None)
  Receive Date: 20100427
  Receipt Date: 20100420
  Transmission Date: 20101027
  Serious: Yes (Other)
  Sender: FDA-Public Use
  Company Number: PHHY2010MX17704

PATIENT
  Sex: Female

DRUGS (2)
  1. LAMISIL [Suspect]
     Indication: ONYCHOMYCOSIS
     Dosage: 2 DF, BID
     Route: 048
     Dates: start: 20100228, end: 20100315
  2. LAMISIL [Suspect]
     Dosage: 1 DF, QD
     Route: 048
     Dates: start: 20100330

REACTIONS (4)
  - BODY TEMPERATURE FLUCTUATION [None]
  - ERYTHEMA [None]
  - PRURITUS [None]
  - RASH PAPULAR [None]
